FAERS Safety Report 7711412-2 (Version None)
Quarter: 2011Q3

REPORT INFORMATION
  Report Type: 
  Country: None (occurrence: None)
  Receive Date: 20110823
  Receipt Date: 20110818
  Transmission Date: 20111222
  Serious: Yes (Death, Hospitalization, Other)
  Sender: FDA-Public Use
  Company Number: 2011SP036300

PATIENT
  Age: 44 Year
  Sex: Female

DRUGS (1)
  1. TEMODAL [Suspect]
     Indication: GLIOBLASTOMA MULTIFORME
     Dosage: 410 MG
     Dates: start: 20101004, end: 20101103

REACTIONS (3)
  - PULMONARY EMBOLISM [None]
  - PNEUMOCYSTIS JIROVECI INFECTION [None]
  - PANCYTOPENIA [None]
